FAERS Safety Report 23267823 (Version 1)
Quarter: 2023Q4

REPORT INFORMATION
  Report Type: Spontaneous
  Country: US (occurrence: US)
  Receive Date: 20231206
  Receipt Date: 20231206
  Transmission Date: 20240110
  Serious: No
  Sender: FDA-Public Use
  Company Number: US-INCYTE CORPORATION-2023IN012432

PATIENT

DRUGS (1)
  1. JAKAFI [Suspect]
     Active Substance: RUXOLITINIB
     Indication: Essential thrombocythaemia
     Dosage: TWO 10 MG TABLETS, BID
     Route: 048

REACTIONS (3)
  - Product availability issue [Unknown]
  - Off label use [Unknown]
  - Drug effective for unapproved indication [Unknown]
